FAERS Safety Report 24815639 (Version 1)
Quarter: 2025Q1

REPORT INFORMATION
  Report Type: Spontaneous
  Country: US (occurrence: US)
  Receive Date: 20250107
  Receipt Date: 20250107
  Transmission Date: 20250408
  Serious: Yes (Other)
  Sender: AMGEN
  Company Number: US-AMGEN-USASP2024257009

PATIENT

DRUGS (1)
  1. ADALIMUMAB [Suspect]
     Active Substance: ADALIMUMAB
     Indication: Proctitis ulcerative
     Route: 065

REACTIONS (7)
  - Interstitial lung disease [Unknown]
  - Fatigue [Unknown]
  - Hypersensitivity [Unknown]
  - Injection site reaction [Unknown]
  - Migraine [Unknown]
  - Myalgia [Unknown]
  - Rash [Unknown]
